FAERS Safety Report 6473822-3 (Version None)
Quarter: 2009Q4

REPORT INFORMATION
  Report Type: 
  Country: None (occurrence: None)
  Receive Date: 20091204
  Receipt Date: 20091125
  Transmission Date: 20100525
  Serious: Yes (Hospitalization)
  Sender: FDA-Public Use
  Company Number: JP-ROCHE-669029

PATIENT

DRUGS (3)
  1. TAMIFLU [Suspect]
     Indication: INFLUENZA
     Route: 048
  2. CALONAL [Suspect]
     Indication: DRUG USE FOR UNKNOWN INDICATION
     Route: 065
  3. KEFRAL [Suspect]
     Indication: DRUG USE FOR UNKNOWN INDICATION
     Dosage: FORM: ORAL FORMULA (NOT OTHERWISE SPECIFIED).
     Route: 048

REACTIONS (1)
  - HEPATITIS FULMINANT [None]
